FAERS Safety Report 9406901 (Version 1)
Quarter: 2013Q3

REPORT INFORMATION
  Report Type: Report from Study
  Country: US (occurrence: US)
  Receive Date: 20130718
  Receipt Date: 20130718
  Transmission Date: 20140515
  Serious: Yes (Death, Life-Threatening, Hospitalization, Disabling, Other)
  Sender: FDA-Public Use
  Company Number: PHHO2010US19242

PATIENT
  Age: 62 Year
  Sex: Male
  Weight: 92.4 kg

DRUGS (28)
  1. TASIGNA [Suspect]
     Indication: PULMONARY ARTERIAL HYPERTENSION
     Route: 048
     Dates: start: 20100922, end: 20101005
  2. TASIGNA [Suspect]
     Route: 048
     Dates: start: 20101006, end: 20101019
  3. TASIGNA [Suspect]
     Route: 048
     Dates: start: 20101020, end: 20110111
  4. TASIGNA [Suspect]
     Route: 048
     Dates: start: 20110113, end: 20110913
  5. PERCOCET [Concomitant]
     Indication: PAIN IN EXTREMITY
  6. K-DUR [Concomitant]
     Indication: HYPOKALAEMIA
  7. IBUPROFEN [Concomitant]
     Indication: PAIN
  8. ALBUTEROL [Concomitant]
     Indication: RHINITIS ALLERGIC
  9. LEVOTHYROXINE SODIUM [Concomitant]
     Indication: HYPERTHYROIDISM
  10. FUROSEMIDE [Concomitant]
     Indication: HYPERTENSION
  11. FUROSEMIDE [Concomitant]
     Indication: POLYURIA
  12. FERROUS SULFATE [Concomitant]
     Indication: MINERAL SUPPLEMENTATION
  13. FOLIC ACID [Concomitant]
     Indication: SUPPLEMENTATION THERAPY
  14. THIAMINE [Concomitant]
     Indication: SUPPLEMENTATION THERAPY
  15. SODIUM CHLORIDE INJECTION + POTASSIUM CHLORID [Concomitant]
     Indication: RHINITIS ALLERGIC
  16. HYDROCORTISONE [Concomitant]
     Indication: SKIN IRRITATION
  17. ERGOCALCIFEROL [Concomitant]
     Indication: SUPPLEMENTATION THERAPY
  18. BOSENTAN [Concomitant]
     Indication: PULMONARY ARTERIAL HYPERTENSION
  19. GLUCOSAMINE [Concomitant]
     Indication: SUPPLEMENTATION THERAPY
  20. AMILORIDE [Concomitant]
     Indication: POLYURIA
  21. AMILORIDE [Concomitant]
     Indication: HYPERTENSION
  22. AFRIN [Concomitant]
     Indication: EPISTAXIS
  23. NASONEX [Concomitant]
     Indication: RHINITIS ALLERGIC
  24. ALDACTONE [Concomitant]
     Indication: POLYURIA
  25. ALDACTONE [Concomitant]
     Indication: HYPERTENSION
  26. CONTINUOUS POSITIVE AIRWAY PRESSURE [Concomitant]
     Indication: SLEEP APNOEA SYNDROME
  27. WARFARIN [Concomitant]
     Indication: PULMONARY ARTERIAL HYPERTENSION
  28. COLECALCIFEROL [Concomitant]
     Indication: SUPPLEMENTATION THERAPY

REACTIONS (9)
  - Hepatic cancer [Fatal]
  - Chronic hepatitis [Fatal]
  - Cholecystitis chronic [Fatal]
  - Abdominal pain [Fatal]
  - Chest pain [Fatal]
  - Concomitant disease progression [Fatal]
  - Femur fracture [Fatal]
  - Cardiac arrest [Fatal]
  - Metastases to bone [Not Recovered/Not Resolved]
